FAERS Safety Report 8589449-3 (Version None)
Quarter: 2012Q3

REPORT INFORMATION
  Report Type: 
  Country: None (occurrence: None)
  Receive Date: 20120813
  Receipt Date: 20120807
  Transmission Date: 20120928
  Serious: Yes (Other)
  Sender: FDA-Public Use
  Company Number: US-BAYER-2012-080918

PATIENT
  Age: 48 Year
  Sex: Female
  Weight: 73 kg

DRUGS (5)
  1. CLOTRIMAZOLE [Concomitant]
     Route: 061
  2. BETASERON [Suspect]
     Indication: PRODUCT USED FOR UNKNOWN INDICATION
     Dosage: 0.3 MG, QOD
     Route: 058
  3. VITAMIN B COMPLEX CAP [Concomitant]
     Route: 048
  4. IRON [Concomitant]
     Dosage: 28 MG, UNK
     Route: 048
  5. MUPIROCIN [Concomitant]
     Route: 061

REACTIONS (1)
  - SKIN DISORDER [None]
